FAERS Safety Report 5937403-X (Version None)
Quarter: 2008Q4

REPORT INFORMATION
  Report Type: 
  Country: None (occurrence: None)
  Receive Date: 20081031
  Receipt Date: 20081024
  Transmission Date: 20090506
  Serious: Yes (Other)
  Sender: FDA-Public Use
  Company Number: CH-TEVA-179454ISR

PATIENT
  Age: 69 Year
  Sex: Male

DRUGS (7)
  1. FLUOROURACIL [Suspect]
     Indication: RECTAL CANCER
     Route: 041
     Dates: start: 20080901
  2. CETUXIMAB [Concomitant]
     Dates: start: 20080901
  3. BEVACIZUMAB [Concomitant]
  4. IRINOTECAN HYDROCHLORIDE [Concomitant]
     Dates: start: 20080901
  5. OXALIPLATIN [Concomitant]
     Dates: start: 20080901
  6. ONDANSETRON [Concomitant]
     Dates: start: 20080901
  7. ESOMEPRAZOLE MAGNESIUM [Concomitant]
     Dates: start: 20080901

REACTIONS (1)
  - SINUS TACHYCARDIA [None]
